FAERS Safety Report 5584130-7 (Version None)
Quarter: 2008Q1

REPORT INFORMATION
  Report Type: 
  Country: None (occurrence: None)
  Receive Date: 20080103
  Receipt Date: 20071219
  Transmission Date: 20080703
  Serious: Yes (Other)
  Sender: FDA-Public Use
  Company Number: 231431J07USA

PATIENT
  Age: 61 Year
  Sex: Female

DRUGS (3)
  1. REBIF [Suspect]
     Indication: MULTIPLE SCLEROSIS
     Dosage: 44 MCG, 3 IN 1 WEEKS, SUBCUTANEOUS
     Route: 058
     Dates: start: 20030311
  2. BLOOD PRESSURE MEDICATION(OTHER ANTIHYPERTENSIVES) [Concomitant]
  3. PROVIGIL [Concomitant]

REACTIONS (4)
  - EYE HAEMORRHAGE [None]
  - EYE PAIN [None]
  - TREATMENT NONCOMPLIANCE [None]
  - VISION BLURRED [None]
